FAERS Safety Report 22201801 (Version 1)
Quarter: 2023Q2

REPORT INFORMATION
  Report Type: Spontaneous
  Country: US (occurrence: US)
  Receive Date: 20230412
  Receipt Date: 20230412
  Transmission Date: 20230722
  Serious: No
  Sender: FDA-Public Use
  Company Number: US-SA-SAC20230411000580

PATIENT
  Sex: Male

DRUGS (13)
  1. DUPIXENT [Suspect]
     Active Substance: DUPILUMAB
     Indication: Neurodermatitis
     Dosage: 300 MG, QOW
     Route: 058
  2. ASPIRIN [Concomitant]
     Active Substance: ASPIRIN
  3. HYDROCODONE [Concomitant]
     Active Substance: HYDROCODONE
     Dosage: 5-15MG
  4. LANTUS [Concomitant]
     Active Substance: INSULIN GLARGINE
     Dosage: LANTUS SOL 100UNIT/ML
  5. STOOL SOFTENER (DOCUSATE) [Concomitant]
     Active Substance: DOCUSATE
  6. METFORMIN [Concomitant]
     Active Substance: METFORMIN HYDROCHLORIDE
  7. VITAMIN B12 [Concomitant]
     Active Substance: CYANOCOBALAMIN
     Dosage: VITAMIN B-12 LOZ
  8. ALLOPURINOL [Concomitant]
     Active Substance: ALLOPURINOL
  9. ATENOLOL [Concomitant]
     Active Substance: ATENOLOL
  10. ATORVASTATIN [Concomitant]
     Active Substance: ATORVASTATIN
  11. BASAGLAR KWIKPEN [Concomitant]
     Active Substance: INSULIN GLARGINE
     Dosage: BASAGLAR KWI SOP 100UNIT
  12. WARFARIN SODIUM [Concomitant]
     Active Substance: WARFARIN SODIUM
  13. CYCLOBENZAPRINE [Concomitant]
     Active Substance: CYCLOBENZAPRINE

REACTIONS (2)
  - Headache [Unknown]
  - Rash [Unknown]
